FAERS Safety Report 9410851 (Version 2)
Quarter: 2013Q4

REPORT INFORMATION
  Report Type: Spontaneous
  Country: US (occurrence: US)
  Receive Date: 20130719
  Receipt Date: 20131227
  Transmission Date: 20140711
  Serious: Yes (Other)
  Sender: FDA-Public Use
  Company Number: US-B.I. PHARMACEUTICALS,INC./RIDGEFIELD-2013-BI-20945BP

PATIENT
  Age: 76 Year
  Sex: Male
  Weight: 158.76 kg

DRUGS (6)
  1. PRADAXA [Suspect]
     Indication: ANTICOAGULANT THERAPY
     Dosage: 300 MG
     Route: 048
     Dates: start: 20111029, end: 20130403
  2. VERAPAMIL ER [Concomitant]
     Dates: start: 2003
  3. LIPITOR [Concomitant]
     Dates: start: 2003
  4. METFORMIN [Concomitant]
     Dates: start: 2010
  5. FENOFIBRATE [Concomitant]
     Dates: start: 2003
  6. VITAMIN B6 [Concomitant]
     Dates: start: 2011

REACTIONS (1)
  - Gastrointestinal haemorrhage [Unknown]
